FAERS Safety Report 13635630 (Version 1)
Quarter: 2017Q2

REPORT INFORMATION
  Report Type: Spontaneous
  Country: US (occurrence: US)
  Receive Date: 20170531
  Receipt Date: 20170531
  Transmission Date: 20170830
  Serious: No
  Sender: FDA-Public Use
  Company Number: US-ASTELLAS-1732336

PATIENT
  Sex: Male

DRUGS (2)
  1. TARCEVA [Suspect]
     Active Substance: ERLOTINIB HYDROCHLORIDE
     Indication: NON-SMALL CELL LUNG CANCER
     Route: 048
     Dates: start: 20160115
  2. XGEVA [Concomitant]
     Active Substance: DENOSUMAB
     Indication: BONE NEOPLASM
     Route: 058
     Dates: start: 20160121

REACTIONS (1)
  - Diarrhoea [Not Recovered/Not Resolved]
